FAERS Safety Report 9385194 (Version 1)
Quarter: 2013Q2

REPORT INFORMATION
  Report Type: Spontaneous
  Country: US (occurrence: None)
  Receive Date: 20130628
  Receipt Date: 20130628
  Transmission Date: 20140414
  Serious: No
  Sender: FDA-Public Use
  Company Number: 2013P1009648

PATIENT
  Sex: 0

DRUGS (3)
  1. INFUMORPH [Suspect]
  2. BUPIVACAINE [Suspect]
  3. UNSPECIFIED ANTICOAGULATION MEDICATION [Concomitant]

REACTIONS (4)
  - Fall [None]
  - Device breakage [None]
  - Myocardial infarction [None]
  - Medical device complication [None]
